FAERS Safety Report 6620041-3 (Version None)
Quarter: 2010Q1

REPORT INFORMATION
  Report Type: 
  Country: None (occurrence: None)
  Receive Date: 20100309
  Receipt Date: 20100303
  Transmission Date: 20100710
  Serious: Yes (Other)
  Sender: FDA-Public Use
  Company Number: US-SANOFI-AVENTIS-2010SA012111

PATIENT
  Age: 21 Year
  Sex: Female
  Weight: 72 kg

DRUGS (5)
  1. LANTUS [Suspect]
     Indication: TYPE 1 DIABETES MELLITUS
     Dosage: DOSE:16 UNIT(S)
     Route: 058
     Dates: start: 20040101
  2. LANTUS [Suspect]
     Dosage: DOSE:23 UNIT(S)
     Route: 058
     Dates: start: 20090101
  3. OPTICLICK [Suspect]
     Indication: TYPE 1 DIABETES MELLITUS
     Dates: start: 20040101
  4. LEVOXYL [Concomitant]
     Indication: HYPOTHYROIDISM
     Dates: start: 20010101
  5. NOVOLOG [Concomitant]
     Dosage: SLIDING SCALE
     Dates: start: 20031201

REACTIONS (2)
  - ABORTION SPONTANEOUS [None]
  - DRUG EXPOSURE DURING PREGNANCY [None]
